FAERS Safety Report 8844268 (Version 2)
Quarter: 2015Q1

REPORT INFORMATION
  Report Type: Spontaneous
  Country: US (occurrence: US)
  Receive Date: 20121017
  Receipt Date: 20150220
  Transmission Date: 20150721
  Serious: Yes (Hospitalization)
  Sender: FDA-Public Use
  Company Number: US-BAYER-2012-106384

PATIENT
  Age: 17 Year
  Sex: Female
  Weight: 55.33 kg

DRUGS (1)
  1. YAZ [Suspect]
     Active Substance: DROSPIRENONE\ETHINYL ESTRADIOL
     Dosage: UNK
     Dates: start: 201005, end: 201006

REACTIONS (4)
  - General physical health deterioration [None]
  - Injury [None]
  - Pain [None]
  - Renal failure [None]

NARRATIVE: CASE EVENT DATE: 20100609
